FAERS Safety Report 7145980-9 (Version None)
Quarter: 2010Q4

REPORT INFORMATION
  Report Type: 
  Country: None (occurrence: None)
  Receive Date: 20101208
  Receipt Date: 20101031
  Transmission Date: 20110411
  Serious: Yes (Other)
  Sender: FDA-Public Use
  Company Number: ES-SANOFI-AVENTIS-2010SA066618

PATIENT
  Age: 33 Year
  Sex: Female

DRUGS (1)
  1. INSULIN GLARGINE [Suspect]
     Route: 058
     Dates: end: 20100701

REACTIONS (1)
  - DIABETIC MASTOPATHY [None]
